FAERS Safety Report 5704902-5 (Version None)
Quarter: 2008Q2

REPORT INFORMATION
  Report Type: 
  Country: None (occurrence: None)
  Receive Date: 20080414
  Receipt Date: 20080408
  Transmission Date: 20081010
  Serious: Yes (Death, Other)
  Sender: FDA-Public Use
  Company Number: CM-BOEHRINGER INGELHEIM GMBH, GERMANY-2005-DE-02196GD

PATIENT

DRUGS (3)
  1. TRIOMUNE [Suspect]
     Indication: HIV INFECTION
  2. NEVIRAPINE NON-BI [Suspect]
     Indication: HIV INFECTION
  3. LAMIVUDINE + ZIDOVUDINE [Suspect]
     Indication: HIV INFECTION

REACTIONS (9)
  - ALANINE AMINOTRANSFERASE INCREASED [None]
  - ANAEMIA [None]
  - DRUG INEFFECTIVE [None]
  - GENERAL PHYSICAL HEALTH DETERIORATION [None]
  - HIV INFECTION [None]
  - NEUROPATHY PERIPHERAL [None]
  - NEUTROPENIA [None]
  - RASH [None]
  - TUBERCULOSIS [None]
